FAERS Safety Report 14022882 (Version 1)
Quarter: 2017Q3

REPORT INFORMATION
  Report Type: Spontaneous
  Country: US (occurrence: US)
  Receive Date: 20170928
  Receipt Date: 20170928
  Transmission Date: 20171128
  Serious: No
  Sender: FDA-Public Use
  Company Number: US-SA-2016SA189988

PATIENT
  Age: 36 Year
  Sex: Female

DRUGS (7)
  1. AUBAGIO [Suspect]
     Active Substance: TERIFLUNOMIDE
     Indication: MULTIPLE SCLEROSIS
     Route: 048
     Dates: start: 20161010
  2. NUEDEXTA [Concomitant]
     Active Substance: DEXTROMETHORPHAN HYDROBROMIDE\QUINIDINE SULFATE
  3. ZANTAC [Concomitant]
     Active Substance: RANITIDINE HYDROCHLORIDE
  4. LISINOPRIL. [Concomitant]
     Active Substance: LISINOPRIL
  5. MELOXICAM. [Concomitant]
     Active Substance: MELOXICAM
  6. CYMBALTA [Concomitant]
     Active Substance: DULOXETINE HYDROCHLORIDE
  7. PROGESTERON [Concomitant]
     Active Substance: PROGESTERONE

REACTIONS (4)
  - Lip swelling [Unknown]
  - Diarrhoea [Unknown]
  - Depression [Unknown]
  - Decreased interest [Unknown]

NARRATIVE: CASE EVENT DATE: 201610
